FAERS Safety Report 24093248 (Version 1)
Quarter: 2024Q3

REPORT INFORMATION
  Report Type: Spontaneous
  Country: US (occurrence: None)
  Receive Date: 20240715
  Receipt Date: 20240715
  Transmission Date: 20241017
  Serious: Yes (Life-Threatening, Hospitalization)
  Sender: ASTRAZENECA
  Company Number: 2024A159306

PATIENT
  Sex: Male

DRUGS (1)
  1. LOKELMA [Suspect]
     Active Substance: SODIUM ZIRCONIUM CYCLOSILICATE
     Indication: Familial periodic paralysis
     Dosage: 10G/ML THREE TIMES A DAY
     Route: 048

REACTIONS (2)
  - Hypokalaemia [Recovered/Resolved]
  - Product prescribing issue [Recovered/Resolved]
